FAERS Safety Report 9987975 (Version 2)
Quarter: 2014Q1

REPORT INFORMATION
  Report Type: Report from Study
  Country: US (occurrence: US)
  Receive Date: 20140307
  Receipt Date: 20140307
  Transmission Date: 20141002
  Serious: Yes (Other)
  Sender: FDA-Public Use
  Company Number: US-B.I. PHARMACEUTICALS,INC./RIDGEFIELD-2014-BI-02900BI

PATIENT
  Age: 64 Year
  Sex: Female

DRUGS (23)
  1. GILOTRIF [Suspect]
     Indication: NON-SMALL CELL LUNG CANCER
     Dosage: 40 MG
     Route: 048
     Dates: start: 20140101
  2. CELEXA [Concomitant]
     Dosage: 40 MG
     Route: 065
  3. PHILLIPS LAXATIVE [Concomitant]
     Route: 065
  4. PRILOSEC [Concomitant]
     Dosage: 40 MG
     Route: 065
  5. OXYCONTIN [Concomitant]
     Dosage: 80 MG
     Route: 065
  6. FLEXERIL [Concomitant]
     Dosage: 10 MG
     Route: 065
  7. BENTYL [Concomitant]
     Dosage: 40 MG
     Route: 065
  8. OXYCODONE HCL [Concomitant]
     Route: 065
  9. XANAX [Concomitant]
     Dosage: DAILY DOSE: 0.25
     Route: 065
  10. HYDROCHLOROTHIAZIDE [Concomitant]
     Dosage: 25 MG
     Route: 065
  11. ZOFRAN [Concomitant]
     Dosage: 8 MG
     Route: 065
  12. SYNTHROID [Concomitant]
     Dosage: 150 MCG
     Route: 065
  13. SIMVASTATIN [Concomitant]
     Dosage: 40 MG
     Route: 065
  14. LYRICA [Concomitant]
     Dosage: 75 MG
     Route: 065
  15. NYSTATIN [Concomitant]
     Route: 065
  16. ATENOLOL [Concomitant]
     Route: 065
  17. NORVASC [Concomitant]
     Route: 065
  18. LOSARTAN POTASSIUM [Concomitant]
     Route: 065
  19. FENOFIBRATE [Concomitant]
     Dosage: 160 MG
     Route: 065
  20. POTASSIUM CHLORIDE [Concomitant]
     Dosage: 10 MEQ
     Route: 065
  21. OPHTHALMIC OINTMENT WITH NEOMYCIN [Concomitant]
     Route: 065
  22. POLYMYXIN B SULFATES [Concomitant]
     Route: 065
  23. DEXAMETHASONE [Concomitant]
     Route: 065

REACTIONS (10)
  - Leukaemia [Not Recovered/Not Resolved]
  - Eyelid margin crusting [Not Recovered/Not Resolved]
  - Ocular hyperaemia [Not Recovered/Not Resolved]
  - Oral pain [Not Recovered/Not Resolved]
  - Nasal discomfort [Not Recovered/Not Resolved]
  - Ocular hyperaemia [Not Recovered/Not Resolved]
  - Eye swelling [Not Recovered/Not Resolved]
  - Pyrexia [Not Recovered/Not Resolved]
  - Hypotension [Unknown]
  - Rash [Unknown]
